FAERS Safety Report 16918648 (Version 1)
Quarter: 2019Q4

REPORT INFORMATION
  Report Type: Spontaneous
  Country: US (occurrence: US)
  Receive Date: 20191014
  Receipt Date: 20191014
  Transmission Date: 20200122
  Serious: No
  Sender: FDA-Public Use
  Company Number: None

PATIENT
  Age: 39 Year
  Sex: Female
  Weight: 143 kg

DRUGS (4)
  1. DIPHENHYDRAMINE 50 MG IV [Concomitant]
     Dates: start: 20191013, end: 20191013
  2. NATALIZUMAB [Suspect]
     Active Substance: NATALIZUMAB
     Indication: MULTIPLE SCLEROSIS
     Dosage: ?          OTHER FREQUENCY:IV INFUSION;?
     Route: 041
     Dates: start: 20191013, end: 20191013
  3. HYDROCORTISONE SUCCINATE 100 MG IV [Concomitant]
     Dates: start: 20191013, end: 20191013
  4. HYDROCORTISONE SUCCINATE 100 MG IV [Concomitant]
     Dates: start: 20191013, end: 20191013

REACTIONS (2)
  - Infusion related reaction [None]
  - Pruritus [None]

NARRATIVE: CASE EVENT DATE: 20191013
